FAERS Safety Report 10929398 (Version 1)
Quarter: 2015Q1

REPORT INFORMATION
  Report Type: Spontaneous
  Country: US (occurrence: None)
  Receive Date: 20150318
  Receipt Date: 20150318
  Transmission Date: 20150721
  Serious: Yes (Life-Threatening, Disabling)
  Sender: FDA-Public Use
  Company Number: None

PATIENT
  Age: 45 Year
  Sex: Male
  Weight: 86.18 kg

DRUGS (6)
  1. OXYCONTIN 20 MGS [Concomitant]
  2. MEDTRONIC INFUSE DEVICE INSERTED THROUGH POSTERIOR. [Concomitant]
  3. MULTI-VITAMIN [Concomitant]
     Active Substance: .ALPHA.-TOCOPHEROL ACETATE, DL-\ASCORBIC ACID\CYANOCOBALAMIN\FLUORIDE ION\FOLIC ACID\NIACIN\PYRIDOXINE\RIBOFLAVIN\THIAMINE\VITAMIN A\VITAMIN D
  4. CLARITIN [Suspect]
     Active Substance: LORATADINE
  5. SUDAFED [Concomitant]
     Active Substance: PSEUDOEPHEDRINE HYDROCHLORIDE
  6. FENTANYL. [Suspect]
     Active Substance: FENTANYL
     Indication: PAIN
     Dosage: 1 PATCH EVERY 3 DAYS  APPLIED AS MEDICATED PATCH TO SKIN
     Route: 062
     Dates: start: 20140901, end: 20150213

REACTIONS (6)
  - Social avoidant behaviour [None]
  - Nervous system disorder [None]
  - Suicidal ideation [None]
  - Sleep disorder [None]
  - Personality change [None]
  - Depression [None]
